FAERS Safety Report 16797605 (Version 2)
Quarter: 2021Q2

REPORT INFORMATION
  Report Type: Report from Study
  Country: CA (occurrence: CA)
  Receive Date: 20190912
  Receipt Date: 20210514
  Transmission Date: 20210716
  Serious: Yes (Other)
  Sender: FDA-Public Use
  Company Number: CA-ORION CORPORATION ORION PHARMA-TREX2019-3305

PATIENT
  Age: 60 Year
  Sex: Female

DRUGS (22)
  1. ATORVASTATIN CALCIUM. [Concomitant]
     Active Substance: ATORVASTATIN CALCIUM
     Route: 065
  2. IRBESARTAN. [Concomitant]
     Active Substance: IRBESARTAN
     Route: 065
  3. PANTOPRAZOLE [Concomitant]
     Active Substance: PANTOPRAZOLE
     Route: 065
  4. METHOTREXATE (TRADE NAME UNKNOWN) [Suspect]
     Active Substance: METHOTREXATE
     Indication: PRODUCT USED FOR UNKNOWN INDICATION
     Route: 065
  5. GABAPENTIN. [Concomitant]
     Active Substance: GABAPENTIN
     Route: 065
  6. BENADRYL [Concomitant]
     Active Substance: DIPHENHYDRAMINE HYDROCHLORIDE
     Route: 065
  7. TYLENOL [Concomitant]
     Active Substance: ACETAMINOPHEN
     Route: 065
  8. FOLIC ACID. [Concomitant]
     Active Substance: FOLIC ACID
     Route: 065
  9. XELJANZ [Concomitant]
     Active Substance: TOFACITINIB CITRATE
     Route: 065
  10. BETAMETHASONE VALERATE AND NEOMYCIN SULFATE [Concomitant]
     Route: 065
  11. NIFEDIPINE. [Concomitant]
     Active Substance: NIFEDIPINE
     Route: 065
  12. ACTEMRA [Suspect]
     Active Substance: TOCILIZUMAB
     Indication: RHEUMATOID ARTHRITIS
     Route: 042
  13. SYNTHROID [Concomitant]
     Active Substance: LEVOTHYROXINE SODIUM
     Route: 065
  14. METFORMIN [Concomitant]
     Active Substance: METFORMIN HYDROCHLORIDE
     Route: 065
  15. PREDNISONE. [Concomitant]
     Active Substance: PREDNISONE
     Route: 065
  16. RITUXIMAB. [Suspect]
     Active Substance: RITUXIMAB
     Indication: RHEUMATOID ARTHRITIS
     Route: 041
  17. CALCIUM CARBONATE;ERGOCALCIFEROL [Concomitant]
     Route: 065
  18. CYCLOBENZAPRINE. [Concomitant]
     Active Substance: CYCLOBENZAPRINE
     Route: 065
  19. MAGNESIUM [Concomitant]
     Active Substance: MAGNESIUM
     Route: 065
  20. GLICLAZIDE [Concomitant]
     Active Substance: GLICLAZIDE
     Route: 065
  21. BISOPROLOL [Concomitant]
     Active Substance: BISOPROLOL
     Route: 065
  22. METHYLPREDNISOLONE SODIUM SUCCINATE. [Concomitant]
     Active Substance: METHYLPREDNISOLONE SODIUM SUCCINATE
     Route: 065

REACTIONS (17)
  - Blood pressure diastolic decreased [Not Recovered/Not Resolved]
  - Abdominal pain [Not Recovered/Not Resolved]
  - Body temperature decreased [Not Recovered/Not Resolved]
  - Diarrhoea [Not Recovered/Not Resolved]
  - Hepatic enzyme abnormal [Not Recovered/Not Resolved]
  - Drug ineffective [Not Recovered/Not Resolved]
  - Nasopharyngitis [Not Recovered/Not Resolved]
  - Constipation [Not Recovered/Not Resolved]
  - Blood pressure fluctuation [Not Recovered/Not Resolved]
  - Blood pressure increased [Not Recovered/Not Resolved]
  - Vomiting [Not Recovered/Not Resolved]
  - Oxygen saturation decreased [Not Recovered/Not Resolved]
  - Erythema [Not Recovered/Not Resolved]
  - Fatigue [Not Recovered/Not Resolved]
  - Nausea [Not Recovered/Not Resolved]
  - Seasonal allergy [Not Recovered/Not Resolved]
  - Diverticulitis [Not Recovered/Not Resolved]
